FAERS Safety Report 7843842-2 (Version None)
Quarter: 2011Q4

REPORT INFORMATION
  Report Type: 
  Country: None (occurrence: None)
  Receive Date: 20111019
  Receipt Date: 20111010
  Transmission Date: 20120403
  Serious: Yes (Hospitalization)
  Sender: FDA-Public Use
  Company Number: 2011SP047990

PATIENT
  Age: 35 Year
  Sex: Female
  Weight: 237.6 kg

DRUGS (1)
  1. IMPLANON [Suspect]
     Indication: CONTRACEPTION
     Dosage: 1 DF;   ; SBDE
     Route: 059
     Dates: start: 20100811

REACTIONS (2)
  - SURGERY [None]
  - MEDICAL DEVICE COMPLICATION [None]
